FAERS Safety Report 6178737-6 (Version None)
Quarter: 2009Q2

REPORT INFORMATION
  Report Type: 
  Country: None (occurrence: None)
  Receive Date: 20090430
  Receipt Date: 20090415
  Transmission Date: 20091009
  Serious: Yes (Other)
  Sender: FDA-Public Use
  Company Number: 014417

PATIENT
  Age: 50 Year
  Sex: Female
  Weight: 99.8 kg

DRUGS (5)
  1. PRIALT [Suspect]
     Indication: POST LAMINECTOMY SYNDROME
     Dosage: 1 UG, SINGLE, INTRATHECAL; 0.033 UG, ONCE/HOUR, INTRATHECAL
     Route: 037
     Dates: start: 20080612, end: 20080612
  2. PRIALT [Suspect]
     Indication: POST LAMINECTOMY SYNDROME
     Dosage: 1 UG, SINGLE, INTRATHECAL; 0.033 UG, ONCE/HOUR, INTRATHECAL
     Route: 037
     Dates: start: 20081028, end: 20081106
  3. HYDROMORPHONE HCL [Concomitant]
  4. CLONIDINE [Concomitant]
  5. BUPIVACAINE [Concomitant]

REACTIONS (1)
  - HYPERSENSITIVITY [None]
